FAERS Safety Report 21596442 (Version 2)
Quarter: 2022Q4

REPORT INFORMATION
  Report Type: Spontaneous
  Country: US (occurrence: US)
  Receive Date: 20221115
  Receipt Date: 20221222
  Transmission Date: 20230113
  Serious: No
  Sender: FDA-Public Use
  Company Number: US-PFIZER INC-PV202200102736

PATIENT
  Age: 56 Year
  Sex: Female

DRUGS (1)
  1. XELJANZ XR [Suspect]
     Active Substance: TOFACITINIB CITRATE
     Indication: Rheumatoid arthritis
     Dosage: 11 MG, 1X/DAY
     Route: 048
     Dates: start: 20221107

REACTIONS (9)
  - Peripheral swelling [Unknown]
  - Joint swelling [Unknown]
  - Condition aggravated [Unknown]
  - Pain [Unknown]
  - Red blood cell count decreased [Unknown]
  - Blood iron decreased [Unknown]
  - Product dose omission issue [Unknown]
  - Oral pain [Unknown]
  - Dry mouth [Unknown]

NARRATIVE: CASE EVENT DATE: 20220101
